FAERS Safety Report 11976529 (Version 2)
Quarter: 2016Q1

REPORT INFORMATION
  Report Type: Spontaneous
  Country: JP (occurrence: JP)
  Receive Date: 20160129
  Receipt Date: 20160203
  Transmission Date: 20160526
  Serious: Yes (Death, Other)
  Sender: FDA-Public Use
  Company Number: PHJP2016JP001838

PATIENT
  Age: 4 Year
  Sex: Male

DRUGS (1)
  1. IMATINIB [Suspect]
     Active Substance: IMATINIB
     Indication: ACUTE LYMPHOCYTIC LEUKAEMIA
     Dosage: UNK
     Route: 048

REACTIONS (5)
  - Bone marrow failure [Unknown]
  - Hyponatraemia [Unknown]
  - Pyrexia [Fatal]
  - Septic shock [Fatal]
  - Abdominal pain [Unknown]
